FAERS Safety Report 20671484 (Version 1)
Quarter: 2022Q2

REPORT INFORMATION
  Report Type: Spontaneous
  Country: US (occurrence: US)
  Receive Date: 20220404
  Receipt Date: 20220404
  Transmission Date: 20220721
  Serious: Yes (Hospitalization)
  Sender: FDA-Public Use
  Company Number: US-ALLERGAN-2210778US

PATIENT
  Sex: Female

DRUGS (1)
  1. LINZESS [Suspect]
     Active Substance: LINACLOTIDE
     Indication: Product used for unknown indication
     Dosage: UNK
     Dates: start: 20211224

REACTIONS (12)
  - Toxicity to various agents [Unknown]
  - Speech disorder [Unknown]
  - Gait disturbance [Unknown]
  - COVID-19 [Unknown]
  - Vomiting [Unknown]
  - Blood potassium decreased [Unknown]
  - Burning sensation [Unknown]
  - Psychotic disorder [Unknown]
  - Confusional state [Unknown]
  - Weight decreased [Unknown]
  - Constipation [Unknown]
  - Product label issue [Unknown]

NARRATIVE: CASE EVENT DATE: 20211201
